FAERS Safety Report 8290351-5 (Version None)
Quarter: 2012Q2

REPORT INFORMATION
  Report Type: 
  Country: None (occurrence: None)
  Receive Date: 20120417
  Receipt Date: 20120410
  Transmission Date: 20120825
  Serious: Yes (Hospitalization, Other)
  Sender: FDA-Public Use
  Company Number: US-AMGEN-USASP2012021071

PATIENT
  Age: 93 Year
  Sex: Male
  Weight: 72.109 kg

DRUGS (8)
  1. ALLOPURINOL [Concomitant]
     Indication: PROPHYLAXIS
     Dosage: 200 MG, QD
     Route: 048
  2. PROCRIT [Suspect]
     Dosage: 40000 IU, QWK
     Route: 058
     Dates: start: 19970101
  3. PROCRIT [Suspect]
     Dosage: 10000 IU, 3 TIMES/WK
     Route: 058
     Dates: start: 19970101, end: 19990101
  4. OMEPRAZOLE [Concomitant]
     Indication: GASTROOESOPHAGEAL REFLUX DISEASE
     Dosage: 20 MG, QD
     Route: 048
     Dates: start: 20020101
  5. FOLIC ACID [Concomitant]
     Indication: COLD AGGLUTININS
     Dosage: 10 MG, QD
     Route: 048
     Dates: start: 19970101
  6. ALLOPURINOL [Concomitant]
     Dosage: 100 MG, UNK
     Route: 048
  7. FUROSEMIDE [Concomitant]
     Indication: FLUID RETENTION
     Dosage: 20 MG, QD
     Dates: start: 19970101
  8. PROCRIT [Suspect]
     Indication: COLD AGGLUTININS
     Dosage: 40000 IU, QWK
     Route: 058
     Dates: start: 19990101

REACTIONS (18)
  - FEELING ABNORMAL [None]
  - CATHETERISATION CARDIAC [None]
  - ATRIOVENTRICULAR BLOCK SECOND DEGREE [None]
  - CEREBROVASCULAR ACCIDENT [None]
  - ABDOMINAL PAIN UPPER [None]
  - HYPERHIDROSIS [None]
  - INJECTION SITE PAIN [None]
  - INFLUENZA LIKE ILLNESS [None]
  - INAPPROPRIATE SCHEDULE OF DRUG ADMINISTRATION [None]
  - HEART RATE DECREASED [None]
  - ATRIOVENTRICULAR BLOCK FIRST DEGREE [None]
  - HAEMATOLOGICAL MALIGNANCY [None]
  - HEART RATE INCREASED [None]
  - COLD SWEAT [None]
  - HAEMOGLOBIN DECREASED [None]
  - TRANSIENT ISCHAEMIC ATTACK [None]
  - GASTROOESOPHAGEAL REFLUX DISEASE [None]
  - FLUID RETENTION [None]
